FAERS Safety Report 8414035-5 (Version None)
Quarter: 2012Q2

REPORT INFORMATION
  Report Type: 
  Country: None (occurrence: None)
  Receive Date: 20120605
  Receipt Date: 20120525
  Transmission Date: 20120825
  Serious: Yes (Life-Threatening, Hospitalization)
  Sender: FDA-Public Use
  Company Number: JP-CELGENEUS-087-50794-12060232

PATIENT
  Sex: Male
  Weight: 53 kg

DRUGS (12)
  1. ZOSYN [Concomitant]
     Route: 065
  2. GLAKAY [Concomitant]
     Route: 065
  3. OLOPATADINE HCL [Concomitant]
     Route: 065
  4. BETHANECHOL CHLORIDE [Concomitant]
     Route: 065
  5. NEUTROGIN [Concomitant]
     Route: 065
  6. LANTUS [Concomitant]
     Route: 065
  7. FLIVASTATIN SODIUM [Concomitant]
     Route: 065
  8. PRIMOBOLAN-DEPOT INJ [Concomitant]
     Route: 065
  9. FLAVITAN [Concomitant]
     Route: 065
  10. EXJADE [Concomitant]
     Route: 065
  11. VIDAZA [Suspect]
     Indication: MYELODYSPLASTIC SYNDROME
     Dosage: 75 MILLIGRAM/SQ. METER
     Route: 041
     Dates: start: 20110421, end: 20110427
  12. HUMALOG [Concomitant]
     Route: 065

REACTIONS (6)
  - NEUTROPHIL COUNT DECREASED [None]
  - ANAEMIA [None]
  - PHARYNGITIS [None]
  - PERITONSILLAR ABSCESS [None]
  - PLATELET COUNT DECREASED [None]
  - WHITE BLOOD CELL COUNT DECREASED [None]
